FAERS Safety Report 9454865 (Version 1)
Quarter: 2013Q3

REPORT INFORMATION
  Report Type: Spontaneous
  Country: LV (occurrence: LV)
  Receive Date: 20130813
  Receipt Date: 20130813
  Transmission Date: 20140515
  Serious: Yes (Other)
  Sender: FDA-Public Use
  Company Number: LV-009507513-1308LVA000920

PATIENT
  Age: 62 Year
  Sex: Female
  Weight: 70 kg

DRUGS (1)
  1. OVESTIN [Suspect]
     Dosage: 500 MICROGRAM, FREQUENCY OF USE NOT KNOWN
     Route: 067
     Dates: start: 20130727

REACTIONS (4)
  - Asthenia [Recovered/Resolved]
  - Nausea [Recovered/Resolved]
  - Bone pain [Recovered/Resolved]
  - Somnolence [Recovered/Resolved]
